FAERS Safety Report 25461806 (Version 1)
Quarter: 2025Q2

REPORT INFORMATION
  Report Type: Spontaneous
  Country: IL (occurrence: IL)
  Receive Date: 20250620
  Receipt Date: 20250620
  Transmission Date: 20250716
  Serious: Yes (Other)
  Sender: TEVA
  Company Number: IL-TEVA-VS-3342772

PATIENT
  Age: 79 Year
  Sex: Female

DRUGS (2)
  1. CARBOPLATIN [Suspect]
     Active Substance: CARBOPLATIN
     Indication: Endometrial adenocarcinoma
     Route: 065
     Dates: end: 2023
  2. TAXOL [Suspect]
     Active Substance: PACLITAXEL
     Indication: Endometrial adenocarcinoma
     Route: 065
     Dates: end: 2023

REACTIONS (1)
  - Endometrial adenocarcinoma [Recovering/Resolving]

NARRATIVE: CASE EVENT DATE: 20230101
